FAERS Safety Report 6036465-1 (Version None)
Quarter: 2009Q1

REPORT INFORMATION
  Report Type: 
  Country: None (occurrence: None)
  Receive Date: 20090112
  Receipt Date: 20090105
  Transmission Date: 20090719
  Serious: Yes (Disabling)
  Sender: FDA-Public Use
  Company Number: 2009JP000072

PATIENT
  Age: 56 Year
  Sex: Male

DRUGS (2)
  1. PROGRAF [Suspect]
     Indication: LIVER TRANSPLANT
  2. STEROID FORMULATION UNKNOWN [Concomitant]

REACTIONS (2)
  - CONTINUOUS HAEMODIAFILTRATION [None]
  - HEREDITARY NEUROPATHIC AMYLOIDOSIS [None]
